FAERS Safety Report 6411418-X (Version None)
Quarter: 2009Q4

REPORT INFORMATION
  Report Type: 
  Country: None (occurrence: None)
  Receive Date: 20091023
  Receipt Date: 20091015
  Transmission Date: 20100525
  Serious: Yes (Hospitalization, Other)
  Sender: FDA-Public Use
  Company Number: KR-ELI_LILLY_AND_COMPANY-KR200910003764

PATIENT
  Age: 61 Year
  Sex: Male

DRUGS (6)
  1. HUMALOG MIX 75/25 [Suspect]
     Dosage: UNK, UNKNOWN
     Route: 065
     Dates: start: 20090601, end: 20090701
  2. HUMALOG MIX 75/25 [Suspect]
     Dosage: 15 U, EACH MORNING
     Route: 065
     Dates: start: 20090701, end: 20090725
  3. HUMALOG MIX 75/25 [Suspect]
     Dosage: 20 U, EACH EVENING
     Route: 058
     Dates: start: 20090701, end: 20090725
  4. HUMALOG MIX 75/25 [Suspect]
     Dosage: 20 U, EACH MORNING
     Route: 065
     Dates: start: 20090726
  5. HUMALOG MIX 75/25 [Suspect]
     Dosage: 15 U, EACH EVENING
     Route: 065
     Dates: start: 20090726
  6. ANTIHYPERTENSIVES [Concomitant]
     Indication: HYPERTENSION
     Dosage: UNK, UNKNOWN
     Route: 048

REACTIONS (1)
  - CEREBROVASCULAR ACCIDENT [None]
